FAERS Safety Report 9323065 (Version 3)
Quarter: 2013Q2

REPORT INFORMATION
  Report Type: Report from Study
  Country: IN (occurrence: IN)
  Receive Date: 20130603
  Receipt Date: 20130625
  Transmission Date: 20140414
  Serious: Yes (Death, Hospitalization, Other)
  Sender: FDA-Public Use
  Company Number: PHHY2012IN128467

PATIENT
  Age: 40 Year
  Sex: Male

DRUGS (1)
  1. GLIVEC [Suspect]
     Indication: CHRONIC MYELOID LEUKAEMIA
     Dosage: 800 MG

REACTIONS (6)
  - Death [Fatal]
  - Leukocytosis [Unknown]
  - Anaemia [Unknown]
  - Pneumonia [Unknown]
  - Blast crisis in myelogenous leukaemia [Unknown]
  - No therapeutic response [Unknown]
